FAERS Safety Report 8982754 (Version 1)
Quarter: 2012Q4

REPORT INFORMATION
  Report Type: 
  Country: GB (occurrence: GB)
  Receive Date: 20121224
  Receipt Date: 20121224
  Transmission Date: 20130627
  Serious: Yes (Death, Other)
  Sender: FDA-Public Use
  Company Number: GB-JNJFOC-20121209965

PATIENT

DRUGS (2)
  1. PSEUDOEPHEDRINE [Suspect]
     Route: 065
  2. PSEUDOEPHEDRINE [Suspect]
     Indication: PRODUCT USED FOR UNKNOWN INDICATION
     Route: 065

REACTIONS (2)
  - Sudden death [Fatal]
  - Arteriosclerosis coronary artery [Unknown]
